FAERS Safety Report 7765861-7 (Version None)
Quarter: 2011Q3

REPORT INFORMATION
  Report Type: 
  Country: None (occurrence: None)
  Receive Date: 20110921
  Receipt Date: 20110915
  Transmission Date: 20111222
  Serious: Yes (Other)
  Sender: FDA-Public Use
  Company Number: US-ABBOTT-11P-163-0855057-00

PATIENT
  Sex: Male

DRUGS (4)
  1. SIMCOR [Suspect]
     Dosage: 1000/20- 1 TABLET
  2. ASPIRIN [Concomitant]
     Indication: PRODUCT USED FOR UNKNOWN INDICATION
  3. UNKNOWN BP MEDICATION [Concomitant]
     Indication: PRODUCT USED FOR UNKNOWN INDICATION
  4. SIMCOR [Suspect]
     Indication: BLOOD CHOLESTEROL
     Dosage: 1000/20- 1 TABLET TWICE A DAY

REACTIONS (2)
  - ARTHROSCOPY [None]
  - FLUSHING [None]
